FAERS Safety Report 21514598 (Version 2)
Quarter: 2022Q4

REPORT INFORMATION
  Report Type: Report from Study
  Country: US (occurrence: US)
  Receive Date: 20221027
  Receipt Date: 20221117
  Transmission Date: 20230113
  Serious: No
  Sender: FDA-Public Use
  Company Number: US-ABBVIE-4175005

PATIENT
  Sex: Female

DRUGS (1)
  1. IMBRUVICA [Suspect]
     Active Substance: IBRUTINIB
     Indication: Chronic lymphocytic leukaemia
     Route: 048
     Dates: start: 20160212

REACTIONS (5)
  - Memory impairment [Unknown]
  - Diarrhoea [Not Recovered/Not Resolved]
  - Adverse drug reaction [Unknown]
  - Irritable bowel syndrome [Unknown]
  - Depression [Unknown]

NARRATIVE: CASE EVENT DATE: 20220101
